FAERS Safety Report 4280408-8 (Version None)
Quarter: 2004Q1

REPORT INFORMATION
  Report Type: 
  Country: None (occurrence: None)
  Receive Date: 20040127
  Receipt Date: 20040119
  Transmission Date: 20041129
  Serious: Yes (Hospitalization)
  Sender: FDA-Public Use
  Company Number: 200410042BNE

PATIENT
  Age: 64 Year
  Sex: Female

DRUGS (2)
  1. ASPIRIN [Suspect]
     Indication: DEEP VENOUS THROMBOSIS PROPHYLAXIS
     Dosage: 150 MG TOTAL DAILY ORAL
     Route: 048
     Dates: start: 20031210, end: 20031226
  2. CO-CODAMOL [Concomitant]

REACTIONS (5)
  - DIZZINESS [None]
  - DUODENAL ULCER [None]
  - GASTRITIS EROSIVE [None]
  - HAEMOGLOBIN ABNORMAL [None]
  - MELAENA [None]
